FAERS Safety Report 7753576-0 (Version None)
Quarter: 2011Q3

REPORT INFORMATION
  Report Type: 
  Country: None (occurrence: None)
  Receive Date: 20110915
  Receipt Date: 20110913
  Transmission Date: 20111222
  Serious: Yes (Hospitalization, Disabling)
  Sender: FDA-Public Use
  Company Number: US-GLAXOSMITHKLINE-A0879747A

PATIENT
  Sex: Male
  Weight: 119.1 kg

DRUGS (8)
  1. AVANDIA [Suspect]
     Indication: DIABETES MELLITUS
     Dosage: 8MG TWICE PER DAY
     Route: 048
     Dates: start: 20020101, end: 20070101
  2. LISINOPRIL [Concomitant]
  3. METFORMIN HYDROCHLORIDE [Concomitant]
  4. AVAPRO [Concomitant]
  5. MEVACOR [Concomitant]
  6. HYDROCHLOROTHIAZIDE [Concomitant]
  7. LIPITOR [Concomitant]
  8. METOPROLOL TARTRATE [Concomitant]

REACTIONS (5)
  - MYOCARDIAL INFARCTION [None]
  - CHEST PAIN [None]
  - CEREBROVASCULAR ACCIDENT [None]
  - CARDIAC FAILURE CONGESTIVE [None]
  - ARTERIOSCLEROSIS [None]
